FAERS Safety Report 21403477 (Version 1)
Quarter: 2022Q4

REPORT INFORMATION
  Report Type: Spontaneous
  Country: JP (occurrence: JP)
  Receive Date: 20221003
  Receipt Date: 20221003
  Transmission Date: 20230113
  Serious: Yes (Other)
  Sender: FDA-Public Use
  Company Number: JP-ONO-2022JP026598

PATIENT
  Age: 8 Decade
  Sex: Male

DRUGS (7)
  1. BRAFTOVI [Suspect]
     Active Substance: ENCORAFENIB
     Indication: Colon cancer
     Dosage: 300 MG
     Route: 048
  2. BRAFTOVI [Suspect]
     Active Substance: ENCORAFENIB
     Dosage: 225 MG
     Route: 048
  3. MEKTOVI [Suspect]
     Active Substance: BINIMETINIB
     Indication: Colon cancer
     Dosage: 90 MG
     Route: 048
  4. MEKTOVI [Suspect]
     Active Substance: BINIMETINIB
     Dosage: 60 MG
     Route: 048
  5. MEKTOVI [Suspect]
     Active Substance: BINIMETINIB
     Dosage: 60 MG
     Route: 048
  6. CETUXIMAB [Concomitant]
     Active Substance: CETUXIMAB
     Indication: Colon cancer
     Dosage: UNK
     Route: 065
  7. CETUXIMAB [Concomitant]
     Active Substance: CETUXIMAB
     Dosage: UNK
     Route: 065

REACTIONS (2)
  - Bronchopulmonary aspergillosis [Unknown]
  - Blood creatine phosphokinase increased [Unknown]
